FAERS Safety Report 9257316 (Version 1)
Quarter: 2013Q2

REPORT INFORMATION
  Report Type: Spontaneous
  Country: US (occurrence: None)
  Receive Date: 20130424
  Receipt Date: 20130424
  Transmission Date: 20140414
  Serious: No
  Sender: FDA-Public Use
  Company Number: None

PATIENT
  Age: 68 Year
  Sex: Female

DRUGS (1)
  1. VOTRIENT [Suspect]
     Indication: NEOPLASM MALIGNANT
     Dosage: 200MG-400MG IN AM, 200MG IN PM
     Route: 048
     Dates: start: 20130304

REACTIONS (3)
  - Headache [None]
  - Diarrhoea [None]
  - Blood pressure increased [None]
